FAERS Safety Report 9883095 (Version 1)
Quarter: 2014Q1

REPORT INFORMATION
  Report Type: Spontaneous
  Country: US (occurrence: None)
  Receive Date: 20140205
  Receipt Date: 20140205
  Transmission Date: 20141002
  Serious: Yes (Death)
  Sender: FDA-Public Use
  Company Number: IMP_07281_2014

PATIENT
  Age: 46 Year
  Sex: Male

DRUGS (7)
  1. ALPRAZOLAM [Suspect]
     Dosage: DF PO
     Route: 048
  2. ACETAMINOPHEN W/HYDROCODONE [Suspect]
     Dosage: DF PO
     Route: 048
  3. AMITRIPTYLINE [Suspect]
     Dosage: DF PO
     Route: 048
  4. DESIPRAMINE [Suspect]
     Dosage: DF ORAL
     Route: 048
  5. ATENOLOL [Suspect]
     Dosage: DF PO
     Route: 048
  6. METHADONE [Suspect]
     Dosage: DF ORAL
     Route: 048
  7. PAROXETINE [Suspect]
     Dosage: DF PO
     Route: 048

REACTIONS (3)
  - Poisoning [None]
  - Completed suicide [None]
  - Exposure via ingestion [None]
